FAERS Safety Report 5737075-3 (Version None)
Quarter: 2008Q2

REPORT INFORMATION
  Report Type: 
  Country: None (occurrence: None)
  Receive Date: 20080512
  Receipt Date: 20080512
  Transmission Date: 20081010
  Serious: No
  Sender: FDA-Public Use
  Company Number: None

PATIENT

DRUGS (1)
  1. LINDANE [Suspect]

REACTIONS (12)
  - CEREBRAL DISORDER [None]
  - CEREBRAL ISCHAEMIA [None]
  - CONVULSION [None]
  - DRUG TOXICITY [None]
  - HYPERHIDROSIS [None]
  - HYPOTENSION [None]
  - HYPOXIC ENCEPHALOPATHY [None]
  - INFECTION [None]
  - MENTAL STATUS CHANGES [None]
  - RESPIRATORY ACIDOSIS [None]
  - TACHYCARDIA [None]
  - UNRESPONSIVE TO STIMULI [None]
